FAERS Safety Report 4918214-0 (Version None)
Quarter: 2006Q1

REPORT INFORMATION
  Report Type: 
  Country: None (occurrence: None)
  Receive Date: 20060215
  Receipt Date: 20060202
  Transmission Date: 20060701
  Serious: Yes (Other)
  Sender: FDA-Public Use
  Company Number: S06-ISR-00602-01

PATIENT
  Age: 44 Year
  Sex: Female

DRUGS (2)
  1. CIPRALEX (ESCITALOPRAM) [Suspect]
     Indication: ANXIETY
     Dosage: 10 MG DAILY PO
     Route: 048
     Dates: start: 20040101
  2. CIPRALEX (ESCITALOPRAM) [Suspect]
     Indication: PANIC DISORDER
     Dosage: 10 MG DAILY PO
     Route: 048
     Dates: start: 20040101

REACTIONS (2)
  - MASTITIS [None]
  - PURULENCE [None]
